FAERS Safety Report 7763950-4 (Version None)
Quarter: 2011Q3

REPORT INFORMATION
  Report Type: 
  Country: None (occurrence: None)
  Receive Date: 20110921
  Receipt Date: 20110915
  Transmission Date: 20111222
  Serious: Yes (Hospitalization, Other)
  Sender: FDA-Public Use
  Company Number: IT-ROXANE LABORATORIES, INC.-2011-RO-01283RO

PATIENT
  Age: 49 Year
  Sex: Male

DRUGS (3)
  1. METHADONE HCL [Suspect]
     Indication: DRUG DEPENDENCE
  2. ALCOHOL [Concomitant]
     Route: 048
  3. BENZODIAZEPINES [Concomitant]
     Route: 048

REACTIONS (3)
  - LEUKOENCEPHALOPATHY [None]
  - CEREBRAL ATROPHY [None]
  - SUICIDE ATTEMPT [None]
